FAERS Safety Report 9504198 (Version 1)
Quarter: 2013Q3

REPORT INFORMATION
  Report Type: Spontaneous
  Country: US (occurrence: US)
  Receive Date: 20130906
  Receipt Date: 20130906
  Transmission Date: 20140515
  Serious: Yes (Hospitalization, Other)
  Sender: FDA-Public Use
  Company Number: US-ROXANE LABORATORIES, INC.-2013-RO-01480RO

PATIENT
  Age: 43 Year
  Sex: Female

DRUGS (1)
  1. DEXAMETHASONE [Suspect]
     Indication: ACUTE LYMPHOCYTIC LEUKAEMIA
     Dosage: 8 MG
     Route: 048
     Dates: start: 2013

REACTIONS (13)
  - Renal failure [Unknown]
  - Dehydration [Not Recovered/Not Resolved]
  - Psychotic disorder [Not Recovered/Not Resolved]
  - Blindness unilateral [Not Recovered/Not Resolved]
  - Pupillary disorder [Unknown]
  - Aggression [Unknown]
  - Anxiety [Unknown]
  - Dysphonia [Unknown]
  - Hyperhidrosis [Unknown]
  - Insomnia [Unknown]
  - Dyspnoea [Unknown]
  - Sensation of heaviness [Unknown]
  - Gait disturbance [Unknown]
